FAERS Safety Report 21228004 (Version 1)
Quarter: 2022Q3

REPORT INFORMATION
  Report Type: Spontaneous
  Country: US (occurrence: US)
  Receive Date: 20220818
  Receipt Date: 20220818
  Transmission Date: 20221027
  Serious: Yes (Death, Other)
  Sender: FDA-Public Use
  Company Number: US-PFIZER INC-202201066379

PATIENT
  Age: 74 Year
  Sex: Female
  Weight: 47.17 kg

DRUGS (1)
  1. AROMASIN [Suspect]
     Active Substance: EXEMESTANE
     Indication: Breast cancer metastatic
     Dosage: 25 MG
     Route: 048

REACTIONS (2)
  - Death [Fatal]
  - Hip fracture [Unknown]

NARRATIVE: CASE EVENT DATE: 20220731
